FAERS Safety Report 4798996-1 (Version None)
Quarter: 2005Q4

REPORT INFORMATION
  Report Type: 
  Country: None (occurrence: None)
  Receive Date: 20051013
  Receipt Date: 20050923
  Transmission Date: 20060501
  Serious: Yes (Hospitalization)
  Sender: FDA-Public Use
  Company Number: 230021K05FRA

PATIENT
  Age: 35 Year
  Sex: Female
  Weight: 44 kg

DRUGS (8)
  1. REBIF [Suspect]
     Indication: MULTIPLE SCLEROSIS
     Dosage: 44 MCG, 3 IN 1 WEEKS, SUBCUTANEOUS
     Route: 058
  2. PAROXETINE HYDROCHLORIDE [Concomitant]
  3. BROMAZEPAM [Concomitant]
  4. TRIMETAZIDINE HYDROCHLORIDE [Concomitant]
  5. MACROGOL [Concomitant]
  6. PARACETAMOL [Concomitant]
  7. EUGYNON [Concomitant]
  8. AMANTADINE HCL [Concomitant]

REACTIONS (7)
  - DISEASE RECURRENCE [None]
  - GAMMA-GLUTAMYLTRANSFERASE INCREASED [None]
  - HYPERTENSION [None]
  - ILEUS [None]
  - PANCREATIC CYST [None]
  - PANCREATIC NEOPLASM [None]
  - PANCREATITIS ACUTE [None]
